FAERS Safety Report 9104699 (Version 5)
Quarter: 2013Q4

REPORT INFORMATION
  Report Type: Report from Study
  Country: TH (occurrence: TH)
  Receive Date: 20130220
  Receipt Date: 20131009
  Transmission Date: 20140711
  Serious: Yes (Death, Life-Threatening, Hospitalization)
  Sender: FDA-Public Use
  Company Number: TH-PFIZER INC-2013041195

PATIENT
  Age: 76 Year
  Sex: Female
  Weight: 56 kg

DRUGS (2)
  1. TOFACITINIB CITRATE [Suspect]
     Indication: RHEUMATOID ARTHRITIS
     Dosage: 10 MG, 2X/DAY
     Route: 048
     Dates: start: 20101005, end: 20130130
  2. METHOTREXATE SODIUM [Suspect]
     Indication: RHEUMATOID ARTHRITIS
     Dosage: 5 MG, WEEKLY
     Route: 048
     Dates: start: 20120606, end: 20130130

REACTIONS (2)
  - Pneumonia bacterial [Fatal]
  - Sepsis [Fatal]
